FAERS Safety Report 13694420 (Version 3)
Quarter: 2019Q4

REPORT INFORMATION
  Report Type: Spontaneous
  Country: US (occurrence: US)
  Receive Date: 20170627
  Receipt Date: 20191024
  Transmission Date: 20200122
  Serious: Yes (Other)
  Sender: FDA-Public Use
  Company Number: US-PFIZER INC-2017279147

PATIENT
  Age: 67 Year

DRUGS (14)
  1. VIAGRA [Suspect]
     Active Substance: SILDENAFIL CITRATE
     Dosage: 100 MG, AS NEEDED (USE AS DIRECTED)
     Route: 048
     Dates: start: 20070210, end: 20071218
  2. SILDENAFIL CITRATE. [Suspect]
     Active Substance: SILDENAFIL CITRATE
     Dosage: 100 MG, UNK (USE AS DIRECTED)
     Dates: start: 20181217, end: 20190116
  3. VIAGRA [Suspect]
     Active Substance: SILDENAFIL CITRATE
     Dosage: 100 MG, AS NEEDED (USE AS DIRECTED)
     Route: 048
     Dates: start: 20060220, end: 20061129
  4. VIAGRA [Suspect]
     Active Substance: SILDENAFIL CITRATE
     Dosage: 100 MG, AS NEEDED (USE AS DIRECTED)
     Route: 048
     Dates: start: 20100401, end: 20100402
  5. VIAGRA [Suspect]
     Active Substance: SILDENAFIL CITRATE
     Dosage: 100 MG, AS NEEDED (USE AS DIRECTED)
     Route: 048
     Dates: start: 20120105, end: 20120115
  6. VIAGRA [Suspect]
     Active Substance: SILDENAFIL CITRATE
     Dosage: 100 MG, AS NEEDED (USE AS DIRECTED)
     Route: 048
     Dates: start: 20130126, end: 20130205
  7. ATORVASTATIN [Concomitant]
     Active Substance: ATORVASTATIN
     Indication: HYPERLIPIDAEMIA
     Dosage: UNK
     Dates: start: 201602
  8. VIAGRA [Suspect]
     Active Substance: SILDENAFIL CITRATE
     Dosage: 100 MG, AS NEEDED (USE AS DIRECTED)
     Route: 048
     Dates: start: 20080121, end: 20080314
  9. HYDROCHLOROTHIAZIDE. [Concomitant]
     Active Substance: HYDROCHLOROTHIAZIDE
     Indication: HYPERTENSION
     Dosage: UNK
     Dates: start: 2014
  10. ALBUTEROL. [Concomitant]
     Active Substance: ALBUTEROL
     Indication: ASTHMA
     Dosage: UNK, (USE IN SPRING)
     Dates: start: 2006
  11. SILDENAFIL CITRATE. [Suspect]
     Active Substance: SILDENAFIL CITRATE
     Indication: ERECTILE DYSFUNCTION
     Dosage: 20 MG, UNK (USE AS DIRECTED)
     Dates: start: 20141002, end: 20170313
  12. VIAGRA [Suspect]
     Active Substance: SILDENAFIL CITRATE
     Indication: ERECTILE DYSFUNCTION
     Dosage: 100 MG, AS NEEDED (USE AS DIRECTED)
     Route: 048
     Dates: start: 20051007, end: 20051213
  13. VIAGRA [Suspect]
     Active Substance: SILDENAFIL CITRATE
     Dosage: 100 MG, AS NEEDED (USE AS DIRECTED)
     Route: 048
     Dates: start: 20110616, end: 20110626
  14. VIAGRA [Suspect]
     Active Substance: SILDENAFIL CITRATE
     Dosage: 100 MG, AS NEEDED (USE AS DIRECTED)
     Dates: start: 20140620, end: 20140630

REACTIONS (4)
  - Malignant melanoma [Unknown]
  - Squamous cell carcinoma [Unknown]
  - Emotional distress [Unknown]
  - Basal cell carcinoma [Unknown]

NARRATIVE: CASE EVENT DATE: 20140909
